FAERS Safety Report 9311517 (Version 1)
Quarter: 2013Q1

REPORT INFORMATION
  Report Type: Spontaneous
  Country: US (occurrence: None)
  Receive Date: 20121204
  Receipt Date: 20121204
  Transmission Date: 20140127
  Serious: No
  Sender: FDA-Public Use
  Company Number: 2012-00178

PATIENT
  Age: 35 Year
  Sex: Female

DRUGS (1)
  1. ZICAM COLD REMEDY ORAL MIST [Suspect]
     Indication: NASOPHARYNGITIS
     Dosage: X 2.
     Route: 048
     Dates: start: 20121026

REACTIONS (1)
  - Ageusia [None]
